FAERS Safety Report 25157446 (Version 3)
Quarter: 2025Q2

REPORT INFORMATION
  Report Type: Spontaneous
  Country: CA (occurrence: CA)
  Receive Date: 20250403
  Receipt Date: 20250530
  Transmission Date: 20250716
  Serious: Yes (Other)
  Sender: PURDUE
  Company Number: CA-NAPPMUNDI-GBR-2025-0124472

PATIENT
  Age: 62 Year
  Sex: Male
  Weight: 117.3 kg

DRUGS (27)
  1. DILAUDID [Suspect]
     Active Substance: HYDROMORPHONE HYDROCHLORIDE
     Indication: Arthralgia
     Dosage: 4 MILLIGRAM (3 OR 4 YEARS AGO FOR UPPER TOOTH)
     Route: 065
  2. DILAUDID [Suspect]
     Active Substance: HYDROMORPHONE HYDROCHLORIDE
     Indication: Ligament sprain
     Dosage: 1 MILLIGRAM, DAILY
     Route: 065
     Dates: start: 20250221, end: 20250228
  3. DILAUDID [Suspect]
     Active Substance: HYDROMORPHONE HYDROCHLORIDE
     Indication: Sciatic nerve injury
  4. DILAUDID [Suspect]
     Active Substance: HYDROMORPHONE HYDROCHLORIDE
     Indication: Back pain
  5. INVOKANA [Concomitant]
     Active Substance: CANAGLIFLOZIN
     Indication: Product used for unknown indication
     Route: 065
  6. BIO SERTRALINE [Concomitant]
     Indication: Product used for unknown indication
     Route: 065
  7. SUCRALFATE [Concomitant]
     Active Substance: SUCRALFATE
     Indication: Product used for unknown indication
     Route: 065
  8. MINT AMLODIPINE [Concomitant]
     Indication: Product used for unknown indication
     Route: 065
  9. ROSUVASTATIN [Concomitant]
     Active Substance: ROSUVASTATIN
     Indication: Product used for unknown indication
     Route: 065
  10. DEXLANSOPRAZOLE [Concomitant]
     Active Substance: DEXLANSOPRAZOLE
     Indication: Product used for unknown indication
     Route: 065
  11. MYRBETRIQ [Concomitant]
     Active Substance: MIRABEGRON
     Indication: Product used for unknown indication
     Route: 065
  12. MYRBETRIQ [Concomitant]
     Active Substance: MIRABEGRON
     Route: 065
  13. DOXYCYCLINE HYDROCHLORIDE [Concomitant]
     Active Substance: DOXYCYCLINE HYDROCHLORIDE
     Indication: Product used for unknown indication
     Route: 065
  14. AMOXICILLIN [Concomitant]
     Active Substance: AMOXICILLIN
     Indication: Product used for unknown indication
     Route: 065
  15. Apo bromfenac [Concomitant]
     Indication: Product used for unknown indication
     Route: 065
  16. MOXIFLOXACIN HYDROCHLORIDE [Concomitant]
     Active Substance: MOXIFLOXACIN HYDROCHLORIDE
     Indication: Product used for unknown indication
     Route: 065
  17. PREDNISOLONE [Concomitant]
     Active Substance: PREDNISOLONE
     Indication: Product used for unknown indication
     Route: 065
  18. M HC [Concomitant]
     Indication: Product used for unknown indication
     Route: 065
  19. DICLOFENAC DIETHYLAMINE [Concomitant]
     Active Substance: DICLOFENAC DIETHYLAMINE
     Indication: Product used for unknown indication
     Route: 065
  20. Hydrasense [Concomitant]
     Indication: Product used for unknown indication
     Route: 065
  21. LORAZEPAM [Concomitant]
     Active Substance: LORAZEPAM
     Indication: Product used for unknown indication
     Route: 065
  22. OLANZAPINE [Concomitant]
     Active Substance: OLANZAPINE
     Indication: Product used for unknown indication
     Route: 065
  23. OLANZAPINE [Concomitant]
     Active Substance: OLANZAPINE
     Route: 065
  24. BIO SILDENAFIL [Concomitant]
     Indication: Product used for unknown indication
     Route: 065
  25. CLOBETASOL PROPIONATE CREAM [Concomitant]
     Active Substance: CLOBETASOL PROPIONATE
     Indication: Product used for unknown indication
     Route: 065
  26. CICLOPIROX OLAMINE [Concomitant]
     Active Substance: CICLOPIROX OLAMINE
     Indication: Product used for unknown indication
     Route: 065
  27. JAMP DICYCLOMINE HCL [Concomitant]
     Indication: Product used for unknown indication
     Route: 065

REACTIONS (12)
  - Dementia Alzheimer^s type [Unknown]
  - Social avoidant behaviour [Unknown]
  - Hypokinesia [Unknown]
  - Disturbance in attention [Unknown]
  - Abnormal behaviour [Unknown]
  - Memory impairment [Unknown]
  - Cognitive disorder [Unknown]
  - Product prescribing issue [Unknown]
  - Inappropriate schedule of product administration [Unknown]
  - Intentional product misuse [Unknown]
  - Product quality issue [Unknown]
  - Drug ineffective [Unknown]
